FAERS Safety Report 18427129 (Version 1)
Quarter: 2020Q4

REPORT INFORMATION
  Report Type: Spontaneous
  Country: CH (occurrence: CH)
  Receive Date: 20201026
  Receipt Date: 20201026
  Transmission Date: 20210114
  Serious: Yes (Other)
  Sender: FDA-Public Use
  Company Number: CH-PFIZER INC-2020410215

PATIENT
  Age: 34 Year
  Sex: Female

DRUGS (1)
  1. XANAX [Suspect]
     Active Substance: ALPRAZOLAM
     Dosage: 1 MG (HALF OF A 2 MG TABLET)

REACTIONS (2)
  - Panic attack [Unknown]
  - Restlessness [Unknown]

NARRATIVE: CASE EVENT DATE: 20201021
